FAERS Safety Report 16419518 (Version 1)
Quarter: 2019Q2

REPORT INFORMATION
  Report Type: Spontaneous
  Country: SE (occurrence: SE)
  Receive Date: 20190612
  Receipt Date: 20190612
  Transmission Date: 20190711
  Serious: Yes (Other)
  Sender: FDA-Public Use
  Company Number: SE-TEVA-2019-SE-1061646

PATIENT
  Age: 16 Year
  Sex: Female

DRUGS (4)
  1. GABAPENTIN. [Suspect]
     Active Substance: GABAPENTIN
     Dosage: GRADUALLY INCREASE TO 19/10 TO 600 MG 1X3, THEN CONTINUED ESCALATION DOSE
     Route: 048
     Dates: start: 20181019, end: 20181210
  2. GABAPENTIN. [Suspect]
     Active Substance: GABAPENTIN
     Indication: PAIN
     Dosage: 20181218, BEGAN TAPERING THE DOSE. EXPOSED 2019-01-01
     Route: 048
     Dates: start: 20181218, end: 20190101
  3. GABAPENTIN. [Suspect]
     Active Substance: GABAPENTIN
     Dosage: ESCALATED TO THE MAXIMUM DOSE OF 1 + 1 + 2 (2400 MG/D) TO THE 11/12
     Route: 048
     Dates: start: 20181211, end: 20181217
  4. GABAPENTIN. [Suspect]
     Active Substance: GABAPENTIN
     Dosage: 26/9 300 MG ONCE DAILY IN AN ESCALATING DOSE
     Route: 048
     Dates: start: 20180926, end: 20181018

REACTIONS (3)
  - Pancreatitis [Recovered/Resolved]
  - Muscle spasms [Recovered/Resolved]
  - Pleurisy [Recovered/Resolved]

NARRATIVE: CASE EVENT DATE: 20181010
